FAERS Safety Report 13179997 (Version 2)
Quarter: 2017Q1

REPORT INFORMATION
  Report Type: Report from Study
  Country: KR (occurrence: KR)
  Receive Date: 20170202
  Receipt Date: 20170213
  Transmission Date: 20170428
  Serious: Yes (Hospitalization, Other)
  Sender: FDA-Public Use
  Company Number: PHHO2017KR002168

PATIENT
  Age: 59 Year
  Sex: Male
  Weight: 47.5 kg

DRUGS (11)
  1. KEPPRA [Concomitant]
     Active Substance: LEVETIRACETAM
     Indication: SEIZURE
     Dosage: 500 MG, BID
     Route: 048
     Dates: start: 20161215
  2. MEGACE [Concomitant]
     Active Substance: MEGESTROL ACETATE
     Indication: DECREASED APPETITE
     Dosage: 5 MG, PRN
     Route: 048
     Dates: start: 20160701
  3. LDK378 [Suspect]
     Active Substance: CERITINIB
     Indication: HAEMATOLOGICAL MALIGNANCY
     Dosage: 600 MG, QD
     Route: 048
     Dates: start: 20160823, end: 20160908
  4. CELLCEPT [Concomitant]
     Active Substance: MYCOPHENOLATE MOFETIL\MYCOPHENOLATE MOFETIL HYDROCHLORIDE
     Indication: RENAL TRANSPLANT
     Dosage: 500 MG, BID
     Route: 048
     Dates: start: 20160624
  5. SOLONDO [Concomitant]
     Active Substance: PREDNISOLONE
     Indication: RENAL TRANSPLANT
     Dosage: 5 MG, QD
     Route: 048
     Dates: start: 20160624
  6. MACPERAN [Concomitant]
     Active Substance: METOCLOPRAMIDE HYDROCHLORIDE
     Indication: PROPHYLAXIS
     Dosage: 40 MG, PRN
     Route: 048
     Dates: start: 20160701
  7. LDK378 [Suspect]
     Active Substance: CERITINIB
     Indication: NEOPLASM
     Dosage: 750 MG, QD
     Route: 048
     Dates: start: 20160701, end: 20160822
  8. LDK378 [Suspect]
     Active Substance: CERITINIB
     Dosage: NO TREATMENT
     Route: 065
     Dates: start: 20161202, end: 20161226
  9. LDK378 [Suspect]
     Active Substance: CERITINIB
     Dosage: 300 MG, QD
     Route: 048
     Dates: start: 20161227, end: 20170125
  10. LDK378 [Suspect]
     Active Substance: CERITINIB
     Dosage: NO TREATMENT
     Route: 065
     Dates: start: 20160909, end: 20160919
  11. LDK378 [Suspect]
     Active Substance: CERITINIB
     Dosage: 450 MG, QD
     Route: 048
     Dates: start: 20160920, end: 20161201

REACTIONS (3)
  - Hyperglycaemia [Recovering/Resolving]
  - Decreased appetite [Not Recovered/Not Resolved]
  - Thrombocytopenia [Recovering/Resolving]

NARRATIVE: CASE EVENT DATE: 20170123
